FAERS Safety Report 17408304 (Version 1)
Quarter: 2020Q1

REPORT INFORMATION
  Report Type: Spontaneous
  Country: DE (occurrence: DE)
  Receive Date: 20200212
  Receipt Date: 20200212
  Transmission Date: 20200409
  Serious: Yes (Other)
  Sender: FDA-Public Use
  Company Number: DE-GLAXOSMITHKLINE-DE2020EME023157

PATIENT
  Sex: Female
  Weight: 100 kg

DRUGS (1)
  1. SULTANOL [Suspect]
     Active Substance: ALBUTEROL SULFATE
     Indication: PRODUCT USED FOR UNKNOWN INDICATION
     Dosage: UNK
     Dates: start: 20030207

REACTIONS (3)
  - Circulatory collapse [Unknown]
  - Vitreous floaters [Unknown]
  - Dizziness [Unknown]

NARRATIVE: CASE EVENT DATE: 20030207
